FAERS Safety Report 6147240-1 (Version None)
Quarter: 2009Q2

REPORT INFORMATION
  Report Type: 
  Country: None (occurrence: None)
  Receive Date: 20090408
  Receipt Date: 20090402
  Transmission Date: 20091009
  Serious: Yes (Other)
  Sender: FDA-Public Use
  Company Number: US-TEVA-190408USA

PATIENT
  Age: 40 Year
  Sex: Female

DRUGS (2)
  1. TAMOXIFEN CITRATE 10MG TABLETS [Suspect]
     Route: 048
  2. CLOMIPHENE [Suspect]
     Route: 048

REACTIONS (1)
  - ECTOPIC PREGNANCY [None]
